FAERS Safety Report 20473743 (Version 5)
Quarter: 2022Q2

REPORT INFORMATION
  Report Type: Spontaneous
  Country: US (occurrence: US)
  Receive Date: 20220215
  Receipt Date: 20220412
  Transmission Date: 20220720
  Serious: No
  Sender: FDA-Public Use
  Company Number: US-GSKCCFUS-Case-01295197_AE-75462

PATIENT
  Sex: Female

DRUGS (2)
  1. NUCALA [Suspect]
     Active Substance: MEPOLIZUMAB
     Indication: Asthma
     Dosage: 100 MG/ML, Z (ONCE A MONTH)
     Route: 058
  2. NUCALA [Suspect]
     Active Substance: MEPOLIZUMAB
     Indication: Product used for unknown indication
     Dosage: UNK 100MG/ML

REACTIONS (10)
  - Injection site haemorrhage [Unknown]
  - Injury associated with device [Unknown]
  - Injection site reaction [Unknown]
  - Injection site pain [Unknown]
  - Injection site paraesthesia [Unknown]
  - Product prescribing issue [Unknown]
  - Product use issue [Unknown]
  - Accidental exposure to product [Unknown]
  - Underdose [Unknown]
  - Product complaint [Unknown]
